FAERS Safety Report 25599504 (Version 1)
Quarter: 2025Q3

REPORT INFORMATION
  Report Type: Other
  Country: US (occurrence: US)
  Receive Date: 20250724
  Receipt Date: 20250724
  Transmission Date: 20251020
  Serious: Yes (Life-Threatening, Hospitalization)
  Sender: DEXCEL LTD.
  Company Number: US-MLMSERVICE-20250711-PI573942-00050-1

PATIENT
  Age: 48 Year
  Sex: Female

DRUGS (8)
  1. AMLODIPINE [Interacting]
     Active Substance: AMLODIPINE BESYLATE
  2. LISINOPRIL [Interacting]
     Active Substance: LISINOPRIL
  3. VENLAFAXINE [Interacting]
     Active Substance: VENLAFAXINE HYDROCHLORIDE
  4. CARIPRAZINE [Interacting]
     Active Substance: CARIPRAZINE
  5. BREXPIPRAZOLE [Interacting]
     Active Substance: BREXPIPRAZOLE
  6. TRAZODONE [Interacting]
     Active Substance: TRAZODONE HYDROCHLORIDE
  7. HYDROXYZINE [Interacting]
     Active Substance: HYDROXYZINE HYDROCHLORIDE
  8. KETAMINE [Interacting]
     Active Substance: KETAMINE
     Indication: Sedation

REACTIONS (9)
  - Serotonin syndrome [Recovered/Resolved]
  - Intentional overdose [Unknown]
  - Drug interaction [Unknown]
  - Distributive shock [Unknown]
  - Angioedema [Unknown]
  - Respiratory distress [Unknown]
  - Hypervolaemia [Unknown]
  - Encephalopathy [Unknown]
  - Intestinal ischaemia [Unknown]
